FAERS Safety Report 4808181-2 (Version None)
Quarter: 2005Q4

REPORT INFORMATION
  Report Type: 
  Country: None (occurrence: None)
  Receive Date: 20051020
  Receipt Date: 20051012
  Transmission Date: 20060501
  Serious: Yes (Other)
  Sender: FDA-Public Use
  Company Number: 6017058

PATIENT
  Age: 84 Year
  Sex: Female

DRUGS (8)
  1. BISOMERCK (BISOPROLOL FUMARATE) [Suspect]
     Indication: HYPERTENSION
     Dosage: (1 IN 1 D) ORAL
     Route: 048
  2. BLOPRESS (CANDESARTAN CILEXETIL) [Concomitant]
  3. DIGOXIN [Concomitant]
  4. NIFEDIPINE [Concomitant]
  5. MELNEURIN (MELPERONE HYDROCHLORIDE) [Concomitant]
  6. SEROQUEL (25 MG) (QUETIAPINE FUMARATE) [Concomitant]
  7. INSULIN [Concomitant]
  8. RISPERDAL [Concomitant]

REACTIONS (6)
  - AORTIC VALVE STENOSIS [None]
  - HALLUCINATIONS, MIXED [None]
  - MENTAL DISORDER DUE TO A GENERAL MEDICAL CONDITION [None]
  - PULMONARY OEDEMA [None]
  - REFUSAL OF TREATMENT BY PATIENT [None]
  - RESTLESSNESS [None]
